FAERS Safety Report 8235582-5 (Version None)
Quarter: 2012Q1

REPORT INFORMATION
  Report Type: 
  Country: None (occurrence: None)
  Receive Date: 20120326
  Receipt Date: 20120314
  Transmission Date: 20120608
  Serious: Yes (Hospitalization)
  Sender: FDA-Public Use
  Company Number: US-ELI_LILLY_AND_COMPANY-US201201006764

PATIENT
  Sex: Female
  Weight: 108.39 kg

DRUGS (5)
  1. METFORMIN HCL [Concomitant]
  2. PRILOSEC [Concomitant]
  3. TOPROL-XL [Concomitant]
  4. CYMBALTA [Suspect]
     Indication: DEPRESSION
     Dosage: 60 MG, QD
     Route: 048
     Dates: start: 20080101, end: 20120113
  5. VALTREX [Concomitant]

REACTIONS (11)
  - CHILLS [None]
  - JAUNDICE [None]
  - BLOOD BILIRUBIN INCREASED [None]
  - BLOOD ALKALINE PHOSPHATASE [None]
  - ABDOMINAL PAIN [None]
  - NAUSEA [None]
  - METABOLIC SYNDROME [None]
  - ASPARTATE AMINOTRANSFERASE INCREASED [None]
  - ALANINE AMINOTRANSFERASE INCREASED [None]
  - URINE COLOUR ABNORMAL [None]
  - HYPERTENSION [None]
